FAERS Safety Report 9336417 (Version 4)
Quarter: 2014Q2

REPORT INFORMATION
  Report Type: Report from Study
  Country: CA (occurrence: CA)
  Receive Date: 20130607
  Receipt Date: 20140402
  Transmission Date: 20141212
  Serious: Yes (Other)
  Sender: FDA-Public Use
  Company Number: CA-ROCHE-1231837

PATIENT
  Age: 85 Year
  Sex: Female
  Weight: 65 kg

DRUGS (14)
  1. RITUXAN [Suspect]
     Indication: RHEUMATOID ARTHRITIS
     Route: 042
     Dates: start: 20120817
  2. RITUXAN [Suspect]
     Route: 042
     Dates: start: 20130823
  3. CELEBREX [Suspect]
     Indication: PRODUCT USED FOR UNKNOWN INDICATION
     Route: 065
  4. METHYLPREDNISOLONE [Suspect]
     Indication: PRODUCT USED FOR UNKNOWN INDICATION
     Route: 042
     Dates: start: 20120817
  5. METHYLPREDNISOLONE [Suspect]
     Route: 042
  6. DIPHENHYDRAMINE HCL [Concomitant]
     Indication: PREMEDICATION
     Route: 048
     Dates: start: 20120817
  7. ACETAMINOPHEN [Concomitant]
     Indication: PREMEDICATION
     Route: 048
     Dates: start: 20120817
  8. PLAQUENIL [Concomitant]
  9. LOVASTATIN [Concomitant]
  10. METFORMIN [Concomitant]
  11. CORTISONE [Concomitant]
     Route: 065
  12. TYLENOL [Concomitant]
     Route: 048
     Dates: start: 20120817
  13. BENADRYL (CANADA) [Concomitant]
     Route: 048
     Dates: start: 20120817
  14. CELEBREX [Concomitant]

REACTIONS (8)
  - Intestinal ulcer [Unknown]
  - Pneumonia [Unknown]
  - Rheumatoid arthritis [Unknown]
  - Nausea [Recovered/Resolved]
  - Headache [Recovered/Resolved]
  - Chills [Recovered/Resolved]
  - Dizziness [Recovered/Resolved]
  - Abdominal pain [Recovered/Resolved]
